FAERS Safety Report 17641986 (Version 1)
Quarter: 2020Q2

REPORT INFORMATION
  Report Type: Spontaneous
  Country: JP (occurrence: JP)
  Receive Date: 20200408
  Receipt Date: 20200408
  Transmission Date: 20200713
  Serious: Yes (Other)
  Sender: FDA-Public Use
  Company Number: JP-CLINIGEN GROUP PLC/ CLINIGEN HEALTHCARE LTD-JP-CLGN-20-00154

PATIENT
  Age: 22 Year
  Sex: Male

DRUGS (2)
  1. FOSCAVIR [Suspect]
     Active Substance: FOSCARNET SODIUM
     Indication: CYTOMEGALOVIRUS CHORIORETINITIS
     Dates: start: 20190227, end: 20190320
  2. FOSCAVIR [Suspect]
     Active Substance: FOSCARNET SODIUM
     Dates: start: 20190329

REACTIONS (1)
  - Cytomegalovirus chorioretinitis [Unknown]
